FAERS Safety Report 18382066 (Version 1)
Quarter: 2020Q4

REPORT INFORMATION
  Report Type: Spontaneous
  Country: US (occurrence: US)
  Receive Date: 20201014
  Receipt Date: 20201014
  Transmission Date: 20210114
  Serious: No
  Sender: FDA-Public Use
  Company Number: US-BAYER-2020-221219

PATIENT
  Age: 4 Year
  Sex: Male

DRUGS (1)
  1. CLARITIN [Suspect]
     Active Substance: LORATADINE
     Dosage: UNK,  1 DOSE AT 1 P.M. TODAY AND ANOTHER DOSE ABOUT 5 OR 6 P.M
     Route: 048

REACTIONS (1)
  - Extra dose administered [Unknown]
